FAERS Safety Report 16043097 (Version 2)
Quarter: 2019Q2

REPORT INFORMATION
  Report Type: Report from Study
  Country: US (occurrence: US)
  Receive Date: 20190306
  Receipt Date: 20190402
  Transmission Date: 20190711
  Serious: No
  Sender: FDA-Public Use
  Company Number: US-INCYTE CORPORATION-2019IN000624

PATIENT

DRUGS (2)
  1. JAKAFI [Suspect]
     Active Substance: RUXOLITINIB
     Indication: MYELOFIBROSIS
     Dosage: 10 MG, BID
     Route: 048
  2. JAKAFI [Suspect]
     Active Substance: RUXOLITINIB
     Dosage: 15 MG, BID
     Route: 048

REACTIONS (14)
  - Incorrect dose administered [Unknown]
  - Stomatitis [Unknown]
  - Malaise [Unknown]
  - Lung disorder [Unknown]
  - Influenza [Unknown]
  - Sinus congestion [Recovered/Resolved]
  - Allergic sinusitis [Recovered/Resolved]
  - Nasopharyngitis [Recovered/Resolved]
  - Oral mucosal eruption [Unknown]
  - Bronchial disorder [Unknown]
  - Upper-airway cough syndrome [Recovered/Resolved]
  - Respiration abnormal [Unknown]
  - Sinusitis [Recovered/Resolved]
  - Cough [Recovered/Resolved]

NARRATIVE: CASE EVENT DATE: 20190122
